FAERS Safety Report 13346302 (Version 2)
Quarter: 2017Q1

REPORT INFORMATION
  Report Type: Spontaneous
  Country: IT (occurrence: IT)
  Receive Date: 20170317
  Receipt Date: 20170321
  Transmission Date: 20170428
  Serious: Yes (Other)
  Sender: FDA-Public Use
  Company Number: IT-BAYER-2017-045340

PATIENT
  Age: 81 Year
  Sex: Male

DRUGS (2)
  1. PLAVIX [Suspect]
     Active Substance: CLOPIDOGREL BISULFATE
     Indication: THROMBOSIS PROPHYLAXIS
     Dosage: 300 MG, QD
     Dates: start: 20150101, end: 20160427
  2. CARDIOASPIRIN 100 MG [Suspect]
     Active Substance: ASPIRIN
     Indication: THROMBOSIS PROPHYLAXIS
     Dosage: 100 MG, QD
     Dates: start: 20151010, end: 20160427

REACTIONS (2)
  - Conjunctival haemorrhage [Not Recovered/Not Resolved]
  - Ocular hyperaemia [Not Recovered/Not Resolved]

NARRATIVE: CASE EVENT DATE: 20160423
